FAERS Safety Report 4320055-2 (Version None)
Quarter: 2004Q1

REPORT INFORMATION
  Report Type: 
  Country: None (occurrence: None)
  Receive Date: 20040317
  Receipt Date: 20040301
  Transmission Date: 20041129
  Serious: Yes (Hospitalization)
  Sender: FDA-Public Use
  Company Number: US012829

PATIENT
  Age: 17 Year
  Sex: Female

DRUGS (2)
  1. PROVIGIL [Suspect]
     Indication: NARCOLEPSY
     Dosage: 100 MG BID ORAL
     Route: 048
     Dates: start: 20031202, end: 20040224
  2. LAMICTAL [Suspect]
     Indication: CONVULSION
     Dates: start: 20031101

REACTIONS (3)
  - APLASIA PURE RED CELL [None]
  - FEELING ABNORMAL [None]
  - LETHARGY [None]
